FAERS Safety Report 4998609-X (Version None)
Quarter: 2006Q2

REPORT INFORMATION
  Report Type: 
  Country: None (occurrence: None)
  Receive Date: 20060509
  Receipt Date: 20060427
  Transmission Date: 20061013
  Serious: Yes (Hospitalization)
  Sender: FDA-Public Use
  Company Number: GXKR2006DK02400

PATIENT
  Age: 19 Year
  Sex: Male

DRUGS (2)
  1. TRAMADOL (NGX) (TRAMADOL) 50 MG [Suspect]
     Indication: DIZZINESS
     Dosage: 50 MG, ORAL
     Route: 048
     Dates: start: 20060307, end: 20060307
  2. RADIOACTIVE IODINE SOLUTION (SODIUM IODIDE (131 I)) [Suspect]
     Indication: WRIST FRACTURE
     Dates: start: 20060324, end: 20060328

REACTIONS (6)
  - DISTURBANCE IN ATTENTION [None]
  - DIZZINESS [None]
  - DYSSTASIA [None]
  - HEADACHE [None]
  - PYREXIA [None]
  - SYNCOPE [None]
